FAERS Safety Report 7581082-5 (Version None)
Quarter: 2011Q2

REPORT INFORMATION
  Report Type: 
  Country: None (occurrence: None)
  Receive Date: 20110629
  Receipt Date: 20110623
  Transmission Date: 20111010
  Serious: Yes (Death, Other)
  Sender: FDA-Public Use
  Company Number: PHHY2011AU56742

PATIENT
  Age: 34 Year

DRUGS (3)
  1. METHADONE HCL [Suspect]
     Dosage: UNK
  2. OXAZEPAM [Suspect]
     Dosage: UNK
  3. NORDAZEPAM [Suspect]

REACTIONS (7)
  - ACCIDENTAL POISONING [None]
  - ABNORMAL BEHAVIOUR [None]
  - OVERDOSE [None]
  - ASPIRATION [None]
  - MENTAL DISORDER [None]
  - TOXICITY TO VARIOUS AGENTS [None]
  - FOREIGN BODY [None]
